FAERS Safety Report 17422768 (Version 2)
Quarter: 2020Q2

REPORT INFORMATION
  Report Type: Spontaneous
  Country: US (occurrence: US)
  Receive Date: 20200215
  Receipt Date: 20200630
  Transmission Date: 20200713
  Serious: Yes (Hospitalization, Other)
  Sender: FDA-Public Use
  Company Number: US-VISTAPHARM, INC.-VER202002-000307

PATIENT
  Age: 51 Year
  Sex: Female

DRUGS (1)
  1. METHADONE [Suspect]
     Active Substance: METHADONE HYDROCHLORIDE
     Indication: FIBROMYALGIA
     Dosage: UNKNOWN
     Route: 048

REACTIONS (4)
  - Leukoencephalopathy [Recovered/Resolved]
  - Hypoxic-ischaemic encephalopathy [Recovered/Resolved]
  - Overdose [Recovered/Resolved]
  - Toxicity to various agents [Recovered/Resolved]
